FAERS Safety Report 6259313-3 (Version None)
Quarter: 2009Q3

REPORT INFORMATION
  Report Type: 
  Country: None (occurrence: None)
  Receive Date: 20090702
  Receipt Date: 20090618
  Transmission Date: 20100115
  Serious: Yes (Hospitalization)
  Sender: FDA-Public Use
  Company Number: 001077

PATIENT
  Age: 54 Year
  Sex: Female
  Weight: 70.5 kg

DRUGS (10)
  1. LACOSAMIDE [Suspect]
     Indication: EPILEPSY
     Dosage: 250 MG BID TABLET ORAL
     Route: 048
     Dates: start: 20021119
  2. OXCARBAZEPINE [Concomitant]
  3. ALBUTEROL SULFATE /00139502/ (SALBUTAMOL SULFATE) [Concomitant]
  4. HYDROCHLOROTHIAZIDE [Concomitant]
  5. VALSARTAN [Concomitant]
  6. FOSAMAX [Concomitant]
  7. LEVETIRACETAM [Concomitant]
  8. MULTIVITAMIN /00831701/ (MULTIVITAMIN /00831701/) [Concomitant]
  9. SYNTHROID [Concomitant]
  10. AMLODIPINE BESYLATE [Concomitant]

REACTIONS (1)
  - CHEST PAIN [None]
